FAERS Safety Report 18877638 (Version 1)
Quarter: 2021Q1

REPORT INFORMATION
  Report Type: Spontaneous
  Country: US (occurrence: US)
  Receive Date: 20210211
  Receipt Date: 20210211
  Transmission Date: 20210420
  Serious: Yes (Other)
  Sender: FDA-Public Use
  Company Number: US-SA-2021SA038860

PATIENT
  Age: 66 Year
  Sex: Female

DRUGS (1)
  1. ZANTAC [Suspect]
     Active Substance: RANITIDINE HYDROCHLORIDE
     Indication: DYSPEPSIA
     Dosage: 75 MG, QD
     Dates: start: 2013, end: 2019

REACTIONS (3)
  - Bladder cancer stage IV [Not Recovered/Not Resolved]
  - Breast cancer stage IV [Not Recovered/Not Resolved]
  - Colon cancer stage IV [Not Recovered/Not Resolved]

NARRATIVE: CASE EVENT DATE: 20190129
